FAERS Safety Report 5072848-4 (Version None)
Quarter: 2006Q3

REPORT INFORMATION
  Report Type: 
  Country: None (occurrence: None)
  Receive Date: 20060807
  Receipt Date: 20060725
  Transmission Date: 20061208
  Serious: Yes (Death)
  Sender: FDA-Public Use
  Company Number: US-NOVOPROD-255561

PATIENT

DRUGS (1)
  1. NOVOSEVEN [Suspect]
     Indication: HAEMORRHAGE INTRACRANIAL
     Dosage: 80 UG/KG, SINGLE
     Route: 042

REACTIONS (2)
  - BRAIN DEATH [None]
  - CONCOMITANT DISEASE PROGRESSION [None]
